FAERS Safety Report 5481959-0 (Version None)
Quarter: 2007Q4

REPORT INFORMATION
  Report Type: 
  Country: None (occurrence: None)
  Receive Date: 20071005
  Receipt Date: 20070923
  Transmission Date: 20080405
  Serious: Yes (Other)
  Sender: FDA-Public Use
  Company Number: 2007S1000376

PATIENT
  Age: 55 Year
  Sex: Male

DRUGS (7)
  1. CUBICIN [Suspect]
     Indication: ENDOCARDITIS STAPHYLOCOCCAL
     Dosage: 6 MG/KG; Q24H; IV
     Route: 042
  2. VANCOMYCIN [Concomitant]
  3. RIFAMPIN [Concomitant]
  4. PIPERACILLIN W/ [Concomitant]
  5. TAZOBACTAM [Concomitant]
  6. NAFCILLIN SODIUM [Concomitant]
  7. CILASTATIN W/IMIPENEM [Concomitant]

REACTIONS (3)
  - CARDIAC VALVE VEGETATION [None]
  - MITRAL VALVE DISEASE [None]
  - TRICUSPID VALVE INCOMPETENCE [None]
